FAERS Safety Report 7605842-7 (Version None)
Quarter: 2011Q3

REPORT INFORMATION
  Report Type: 
  Country: None (occurrence: None)
  Receive Date: 20110712
  Receipt Date: 20110712
  Transmission Date: 20111222
  Serious: Yes (Other)
  Sender: FDA-Public Use
  Company Number: None

PATIENT
  Sex: Male
  Weight: 83.9154 kg

DRUGS (4)
  1. NIASPAN [Concomitant]
  2. PROPECIA [Suspect]
     Indication: ALOPECIA
     Dosage: 1MG Q.D. PO
     Route: 048
     Dates: start: 20050513, end: 20081015
  3. ZYRTEC [Concomitant]
  4. SINGULAIR [Concomitant]

REACTIONS (2)
  - INFERTILITY [None]
  - ERECTILE DYSFUNCTION [None]
